FAERS Safety Report 7547606-9 (Version None)
Quarter: 2011Q2

REPORT INFORMATION
  Report Type: 
  Country: None (occurrence: None)
  Receive Date: 20110614
  Receipt Date: 20110412
  Transmission Date: 20111010
  Serious: No
  Sender: FDA-Public Use
  Company Number: US-ALLERGAN-1105146US

PATIENT
  Age: 35 Year
  Sex: Female

DRUGS (2)
  1. MOISTURIZER [Concomitant]
  2. ACZONE [Suspect]
     Indication: ACNE
     Dosage: 1 DF, QD
     Route: 061
     Dates: end: 20110403

REACTIONS (1)
  - DEPRESSION [None]
